FAERS Safety Report 7609032-3 (Version None)
Quarter: 2011Q3

REPORT INFORMATION
  Report Type: 
  Country: None (occurrence: None)
  Receive Date: 20110714
  Receipt Date: 20110704
  Transmission Date: 20111222
  Serious: Yes (Death)
  Sender: FDA-Public Use
  Company Number: US-ROCHE-787832

PATIENT
  Age: 38 Year
  Sex: Male

DRUGS (3)
  1. DIAZEPAM [Suspect]
     Route: 065
  2. COCAINE [Suspect]
     Route: 065
  3. METHADONE HCL [Suspect]
     Route: 065

REACTIONS (1)
  - TOXICITY TO VARIOUS AGENTS [None]
